FAERS Safety Report 12820102 (Version 1)
Quarter: 2016Q4

REPORT INFORMATION
  Report Type: Spontaneous
  Country: CA (occurrence: CA)
  Receive Date: 20161006
  Receipt Date: 20161006
  Transmission Date: 20170207
  Serious: No
  Sender: FDA-Public Use
  Company Number: CA-TOLMAR, INC.-2016CA006608

PATIENT

DRUGS (1)
  1. ELIGARD [Suspect]
     Active Substance: LEUPROLIDE ACETATE
     Indication: PROSTATE CANCER
     Dosage: 30 MG,  EVERY 4 MONTHS
     Route: 058
     Dates: start: 20160307

REACTIONS (2)
  - Injection site pain [Recovered/Resolved]
  - Needle issue [Unknown]

NARRATIVE: CASE EVENT DATE: 20160705
